FAERS Safety Report 19427364 (Version 1)
Quarter: 2021Q2

REPORT INFORMATION
  Report Type: Report from Study
  Country: HK (occurrence: HK)
  Receive Date: 20210616
  Receipt Date: 20210616
  Transmission Date: 20210717
  Serious: Yes (Hospitalization)
  Sender: FDA-Public Use
  Company Number: HK-ROCHE-2848860

PATIENT
  Age: 64 Year
  Sex: Male
  Weight: 56.1 kg

DRUGS (17)
  1. SYNALAR [Concomitant]
     Active Substance: FLUOCINOLONE ACETONIDE
     Indication: PRURITUS
     Dates: start: 20210105
  2. FEXOFENADINE [Concomitant]
     Active Substance: FEXOFENADINE HYDROCHLORIDE
     Indication: RASH
     Dates: start: 20210126
  3. EXFORGE [Concomitant]
     Active Substance: AMLODIPINE BESYLATE\VALSARTAN
     Indication: HYPERTENSION
     Dates: start: 20200114
  4. LACTULOSE. [Concomitant]
     Active Substance: LACTULOSE
     Dates: start: 20201124
  5. BEVACIZUMAB. [Suspect]
     Active Substance: BEVACIZUMAB
     Indication: HEPATOCELLULAR CARCINOMA
     Dosage: ON 09/MAR/2021, HE RECEIVED HE MOST RECENT DOSE OF BEVACIZUMAB 955.5 MG PRIOR TO AE/SAE ONSET
     Route: 042
     Dates: start: 20181115
  6. ENTECAVIR. [Concomitant]
     Active Substance: ENTECAVIR
     Indication: HEPATITIS B
     Dates: start: 20180905
  7. FAMOTIDINE. [Concomitant]
     Active Substance: FAMOTIDINE
     Indication: GASTROOESOPHAGEAL REFLUX DISEASE
     Dates: start: 20190521
  8. LIQUID PARAFFIN;WHITE SOFT PARAFFIN [Concomitant]
     Indication: RASH
     Dates: start: 20201124
  9. PIRITON [Concomitant]
     Active Substance: CHLORPHENIRAMINE MALEATE
     Dates: start: 20201014
  10. NORVASC [Concomitant]
     Active Substance: AMLODIPINE BESYLATE
     Indication: HYPERTENSION
     Dates: start: 20200225
  11. ANUSOL (HONG KONG) [Concomitant]
     Indication: HAEMORRHOIDS
     Dates: start: 20201124
  12. ELOMET [Concomitant]
     Active Substance: MOMETASONE FUROATE
     Indication: RASH
     Dates: start: 20210126
  13. VALSARTAN. [Concomitant]
     Active Substance: VALSARTAN
  14. EMULSIFYING OINTMENT [Concomitant]
     Indication: RASH
     Dates: start: 20210126
  15. ATEZOLIZUMAB. [Suspect]
     Active Substance: ATEZOLIZUMAB
     Indication: HEPATOCELLULAR CARCINOMA
     Dosage: ON 09/MAR/2021, HE RECEIVED HE MOST RECENT DOSE OF ATEZOLIZUMAB 1200 MG PRIOR TO AE/SAE ONSET
     Route: 041
     Dates: start: 20181115
  16. THYROXINE SODIUM [Concomitant]
     Active Substance: LEVOTHYROXINE SODIUM
     Indication: HYPERTHYROIDISM
     Dates: start: 20190614
  17. HYDROCORTISONE. [Concomitant]
     Active Substance: HYDROCORTISONE
     Indication: ADRENAL INSUFFICIENCY
     Dates: start: 20191002

REACTIONS (1)
  - Scrotal dermatitis [Recovering/Resolving]

NARRATIVE: CASE EVENT DATE: 20210329
